FAERS Safety Report 19153079 (Version 1)
Quarter: 2021Q2

REPORT INFORMATION
  Report Type: Spontaneous
  Country: US (occurrence: US)
  Receive Date: 20210418
  Receipt Date: 20210418
  Transmission Date: 20210717
  Serious: Yes (Hospitalization, Disabling)
  Sender: FDA-Public Use
  Company Number: None

PATIENT
  Age: 27 Year
  Sex: Female
  Weight: 56.25 kg

DRUGS (1)
  1. EMGALITY [Suspect]
     Active Substance: GALCANEZUMAB-GNLM
     Indication: MIGRAINE

REACTIONS (8)
  - Depression [None]
  - Tinnitus [None]
  - Dizziness [None]
  - Deafness [None]
  - Panic attack [None]
  - Vision blurred [None]
  - Heart rate increased [None]
  - Nausea [None]

NARRATIVE: CASE EVENT DATE: 20210322
